FAERS Safety Report 7230012-4 (Version None)
Quarter: 2011Q1

REPORT INFORMATION
  Report Type: 
  Country: None (occurrence: None)
  Receive Date: 20110117
  Receipt Date: 20110113
  Transmission Date: 20110831
  Serious: Yes (Death, Hospitalization)
  Sender: FDA-Public Use
  Company Number: US-BRISTOL-MYERS SQUIBB COMPANY-15209117

PATIENT
  Age: 71 Year
  Sex: Female

DRUGS (24)
  1. DOCUSATE SODIUM [Concomitant]
     Dosage: 2DF= 2 TABS
     Route: 048
     Dates: start: 20100720
  2. SYNTHROID [Concomitant]
     Indication: HYPOTHYROIDISM
     Route: 048
     Dates: start: 20090101
  3. DARVOCET [Concomitant]
     Indication: BONE PAIN
     Dosage: 1DF=1 TO 2 TABS PRN
     Route: 048
     Dates: start: 20091111
  4. VANTIN [Concomitant]
     Route: 048
     Dates: start: 20100919
  5. ROXANOL [Concomitant]
     Route: 048
  6. DURAGESIC-100 [Concomitant]
     Indication: BONE PAIN
     Dates: start: 20090711
  7. ALDACTONE [Concomitant]
     Indication: ASCITES
     Dosage: 1DF=1TABS
     Route: 048
     Dates: start: 20100720
  8. DARVOCET [Concomitant]
     Indication: HEADACHE
     Dosage: 1DF=1 TO 2 TABS PRN
     Route: 048
     Dates: start: 20091111
  9. DARVOCET [Concomitant]
     Indication: PAIN IN EXTREMITY
     Dosage: 1DF=1 TO 2 TABS PRN
     Route: 048
     Dates: start: 20091111
  10. LASIX [Concomitant]
     Route: 048
  11. FENTANYL-100 [Concomitant]
     Dosage: 1DF= 75MG HR/ TREATEMENT FOR 2HR
  12. IXEMPRA KIT [Suspect]
     Indication: BREAST CANCER
     Dosage: INTERRUPTED ON 16JUL2010 26MG 09JUL-02SEP10
     Route: 042
     Dates: start: 20100709, end: 20100902
  13. CARBOPLATIN [Suspect]
     Indication: BREAST CANCER
     Dosage: INTERRUPTED ON 16JUL2010. 190MG:09JUL TO 02SEP2010
     Route: 042
     Dates: start: 20100709, end: 20100902
  14. MECLIZINE [Concomitant]
     Indication: PROPHYLAXIS
     Route: 048
     Dates: start: 20100104
  15. FENTANYL-100 [Concomitant]
     Indication: BONE PAIN
     Dosage: 1DF=1PATCH 150MCG
     Dates: start: 20091101
  16. KLOR-CON [Concomitant]
     Indication: PROPHYLAXIS
     Dosage: 1DF= 1 TABS
     Route: 048
     Dates: start: 20100720
  17. LORAZEPAM [Concomitant]
     Indication: PROPHYLAXIS
     Dates: start: 20100819
  18. ADDERALL 10 [Concomitant]
     Indication: PROPHYLAXIS
     Route: 048
     Dates: start: 20100915
  19. POTASSIUM CHLORIDE [Concomitant]
     Indication: PROPHYLAXIS
     Route: 048
     Dates: start: 20100730
  20. LIDOCAINE HYDROCHLORIDE IN PLASTIC CONTAINER [Concomitant]
     Route: 048
  21. COUMADIN [Concomitant]
     Route: 048
  22. FENTANYL-100 [Concomitant]
     Indication: PAIN IN EXTREMITY
     Dosage: 1DF=1PATCH 150MCG
     Dates: start: 20091101
  23. LANOXIN [Concomitant]
     Route: 048
  24. DURAGESIC-100 [Concomitant]
     Indication: PAIN IN EXTREMITY
     Dates: start: 20090711

REACTIONS (4)
  - PULMONARY EMBOLISM [None]
  - PNEUMONIA [None]
  - NEOPLASM MALIGNANT [None]
  - BACTERAEMIA [None]
